FAERS Safety Report 8914373 (Version 4)
Quarter: 2013Q3

REPORT INFORMATION
  Report Type: Spontaneous
  Country: JP (occurrence: JP)
  Receive Date: 20121118
  Receipt Date: 20130710
  Transmission Date: 20140515
  Serious: Yes (Disabling)
  Sender: FDA-Public Use
  Company Number: JP-009507513-1211JPN006048

PATIENT
  Age: 36 Year
  Sex: Male
  Weight: 52 kg

DRUGS (7)
  1. ISENTRESS TABLETS 400MG [Suspect]
     Indication: HIV INFECTION
     Dosage: 400 MG, BID
     Route: 048
     Dates: start: 20121023, end: 20121105
  2. INTELENCE [Suspect]
     Indication: HIV INFECTION
     Dosage: 200 MG, BID
     Route: 048
     Dates: start: 20121023, end: 20121105
  3. EPIVIR [Concomitant]
     Indication: HIV INFECTION
     Dosage: 150 MG, BID
     Route: 048
     Dates: start: 20121107
  4. ZERIT [Concomitant]
     Indication: HIV INFECTION
     Dosage: TOTAL DAILY DOSE 60MG, DIVIDED DOSE FREQUENCY UNKNOWN
     Route: 048
     Dates: start: 20121107
  5. INVIRASE [Concomitant]
     Indication: HIV INFECTION
     Dosage: DAILY DOSE 800 MG
     Route: 048
     Dates: start: 20121107
  6. AMOBAN [Concomitant]
     Indication: INSOMNIA
     Dosage: 7.5 MG, QD
     Route: 048
     Dates: start: 20121023
  7. HALCION [Concomitant]
     Indication: INSOMNIA
     Dosage: 0.25 MG, QD
     Route: 048
     Dates: start: 20121023

REACTIONS (10)
  - Balance disorder [Recovering/Resolving]
  - Hypoaesthesia [Recovering/Resolving]
  - Gait disturbance [Recovering/Resolving]
  - Decreased appetite [Recovering/Resolving]
  - Weight decreased [Recovering/Resolving]
  - Nervous system disorder [Recovering/Resolving]
  - Neuropathy peripheral [Recovering/Resolving]
  - Affect lability [Recovered/Resolved]
  - Dysaesthesia [Recovered/Resolved]
  - Insomnia [Recovered/Resolved]
